FAERS Safety Report 24370274 (Version 2)
Quarter: 2024Q4

REPORT INFORMATION
  Report Type: Spontaneous
  Country: US (occurrence: US)
  Receive Date: 20240927
  Receipt Date: 20241002
  Transmission Date: 20250114
  Serious: No
  Sender: ROCHE
  Company Number: US-ROCHE-10000091678

PATIENT
  Age: 9 Year
  Sex: Female

DRUGS (1)
  1. XOLAIR [Suspect]
     Active Substance: OMALIZUMAB
     Indication: Food allergy
     Dosage: LEFT AND RIGHT ARM. TWO INJECTIONS FOR A TOTAL OF 375MG EVERY TWO WEEKS
     Route: 058
     Dates: start: 202409

REACTIONS (2)
  - Fatigue [Recovered/Resolved]
  - Pyrexia [Unknown]
